FAERS Safety Report 9688614 (Version 1)
Quarter: 2013Q4

REPORT INFORMATION
  Report Type: Report from Study
  Country: US (occurrence: US)
  Receive Date: 20131114
  Receipt Date: 20131114
  Transmission Date: 20140711
  Serious: Yes (Hospitalization)
  Sender: FDA-Public Use
  Company Number: US-ABBVIE-13P-163-1167254-00

PATIENT
  Age: 16 Year
  Sex: Female

DRUGS (3)
  1. HUMIRA [Suspect]
     Indication: COLITIS ULCERATIVE
     Route: 058
     Dates: start: 201304
  2. HUMIRA [Suspect]
     Route: 058
     Dates: start: 201308
  3. LEXAPRO [Concomitant]
     Indication: ANXIETY
     Dates: start: 20130905

REACTIONS (2)
  - Haematochezia [Unknown]
  - Anxiety [Unknown]
